FAERS Safety Report 5869904-7 (Version None)
Quarter: 2008Q3

REPORT INFORMATION
  Report Type: 
  Country: None (occurrence: None)
  Receive Date: 20080904
  Receipt Date: 20080826
  Transmission Date: 20090109
  Serious: Yes (Other)
  Sender: FDA-Public Use
  Company Number: PHHY2008GB16719

PATIENT
  Sex: Female
  Weight: 63 kg

DRUGS (3)
  1. ACLASTA [Suspect]
     Indication: OSTEOPOROSIS
     Dosage: 5 MG
     Route: 042
     Dates: start: 20080723
  2. IBUPROFEN [Concomitant]
  3. ADCAL-D3 [Concomitant]
     Indication: OSTEOPOROSIS
     Dosage: 2 TAB/DAY
     Route: 048

REACTIONS (9)
  - DERMATITIS BULLOUS [None]
  - DYSGEUSIA [None]
  - EYE PAIN [None]
  - GLOSSODYNIA [None]
  - INSOMNIA [None]
  - MYALGIA [None]
  - PHOTOPHOBIA [None]
  - SWELLING FACE [None]
  - SWOLLEN TONGUE [None]
